FAERS Safety Report 5734382-5 (Version None)
Quarter: 2008Q2

REPORT INFORMATION
  Report Type: 
  Country: None (occurrence: None)
  Receive Date: 20080508
  Receipt Date: 20080508
  Transmission Date: 20081010
  Serious: Yes (Death)
  Sender: FDA-Public Use
  Company Number: None

PATIENT
  Age: 66 Year
  Sex: Male
  Weight: 83.9154 kg

DRUGS (1)
  1. AVANDIA [Suspect]
     Indication: DIABETES MELLITUS
     Dosage: ONCE A DAY PO/2-3 YEARS
     Route: 048
     Dates: start: 20050301, end: 20080316

REACTIONS (1)
  - MYOCARDIAL INFARCTION [None]
